FAERS Safety Report 15400624 (Version 3)
Quarter: 2018Q4

REPORT INFORMATION
  Report Type: Spontaneous
  Country: US (occurrence: US)
  Receive Date: 20180919
  Receipt Date: 20181027
  Transmission Date: 20190204
  Serious: No
  Sender: FDA-Public Use
  Company Number: PHEH2018US038526

PATIENT
  Sex: Male

DRUGS (2)
  1. PREDNISOLONE ACETATE. [Suspect]
     Active Substance: PREDNISOLONE ACETATE
     Indication: CYSTOID MACULAR OEDEMA
     Dosage: 1 GTT, QID
     Route: 047
     Dates: start: 20180730, end: 20180910
  2. KETOROLAC [Concomitant]
     Active Substance: KETOROLAC\KETOROLAC TROMETHAMINE
     Indication: POSTOPERATIVE CARE
     Route: 065

REACTIONS (12)
  - Muscle spasms [Unknown]
  - Gastric disorder [Unknown]
  - Feeling abnormal [Unknown]
  - Myalgia [Unknown]
  - Vertigo [Not Recovered/Not Resolved]
  - Dyspnoea [Unknown]
  - Neuralgia [Unknown]
  - Muscular weakness [Unknown]
  - Paraesthesia [Unknown]
  - Pain in extremity [Unknown]
  - Fatigue [Not Recovered/Not Resolved]
  - Sleep disorder [Not Recovered/Not Resolved]
